FAERS Safety Report 8835753 (Version 3)
Quarter: 2013Q1

REPORT INFORMATION
  Report Type: Spontaneous
  Country: US (occurrence: US)
  Receive Date: 20121011
  Receipt Date: 20130305
  Transmission Date: 20140127
  Serious: No
  Sender: FDA-Public Use
  Company Number: US-009507513-1210USA004318

PATIENT
  Age: 52 None
  Sex: Male
  Weight: 87.53 kg

DRUGS (4)
  1. PEG-INTRON [Suspect]
     Indication: HEPATITIS C
     Dosage: UNK
     Dates: start: 20120910
  2. RIBAVIRIN [Suspect]
     Indication: HEPATITIS C
     Dosage: 3 AM AND PM
     Route: 048
     Dates: start: 20120910, end: 2012
  3. RIBAVIRIN [Suspect]
     Dosage: 2 AM AND PM
     Route: 048
     Dates: start: 2012
  4. VICTRELIS [Suspect]
     Indication: HEPATITIS C
     Dosage: UNK
     Dates: start: 20121008

REACTIONS (17)
  - Musculoskeletal disorder [Recovering/Resolving]
  - Weight decreased [Unknown]
  - Hypersomnia [Unknown]
  - Pain [Unknown]
  - Pyrexia [Unknown]
  - Chills [Unknown]
  - Headache [Unknown]
  - Dizziness [Unknown]
  - Fatigue [Unknown]
  - Decreased appetite [Unknown]
  - Headache [Recovering/Resolving]
  - Fatigue [Unknown]
  - Fatigue [Unknown]
  - Pruritus [Unknown]
  - Depression [Recovering/Resolving]
  - Influenza like illness [Recovering/Resolving]
  - Somnolence [Recovering/Resolving]
